FAERS Safety Report 23782030 (Version 4)
Quarter: 2024Q3

REPORT INFORMATION
  Report Type: Spontaneous
  Country: FR (occurrence: FR)
  Receive Date: 20240425
  Receipt Date: 20240910
  Transmission Date: 20241017
  Serious: Yes (Death, Hospitalization, Other)
  Sender: TEVA
  Company Number: None

PATIENT
  Age: 67 Year
  Sex: Male
  Weight: 74 kg

DRUGS (11)
  1. CLARITHROMYCIN [Suspect]
     Active Substance: CLARITHROMYCIN
     Indication: Helicobacter infection
     Dosage: 1 GRAM DAILY
     Route: 048
     Dates: start: 20100424, end: 20100501
  2. AMOXICILLIN [Suspect]
     Active Substance: AMOXICILLIN
     Indication: Helicobacter gastritis
     Dosage: 2 GRAMS DAILY
     Route: 048
     Dates: start: 20100424, end: 20100501
  3. SIMVASTATIN [Suspect]
     Active Substance: SIMVASTATIN
     Indication: Product used for unknown indication
     Dosage: DOSAGE NOT SPECIFIED
     Route: 065
  4. ACETAMINOPHEN [Suspect]
     Active Substance: ACETAMINOPHEN
     Indication: Product used for unknown indication
     Dosage: 3 G/DAY
     Route: 048
  5. ESOMEPRAZOLE [Suspect]
     Active Substance: ESOMEPRAZOLE
     Indication: Helicobacter infection
     Dosage: 20 MG, BID
     Route: 048
     Dates: start: 20100424, end: 20100430
  6. SMECTA [Suspect]
     Active Substance: MONTMORILLONITE
     Indication: Product used for unknown indication
     Dosage: DOSE NOT SPECIFIED
     Route: 065
  7. IRBESARTAN [Suspect]
     Active Substance: IRBESARTAN
     Indication: Hypertension
     Dosage: 150 MG DAILY
     Route: 048
     Dates: start: 201002
  8. NORFLOXACIN [Suspect]
     Active Substance: NORFLOXACIN
     Indication: Product used for unknown indication
     Dosage: DOSAGE NOT SPECIFIED
     Route: 065
  9. VERAPAMIL HYDROCHLORIDE [Suspect]
     Active Substance: VERAPAMIL HYDROCHLORIDE
     Indication: Hypertension
     Dosage: 240MG/DAY
     Route: 048
     Dates: start: 20100126, end: 20100507
  10. COLCHICINE [Suspect]
     Active Substance: COLCHICINE
     Indication: Hyperuricaemia
     Dosage: 3 MG/DAY DURING 6 DAYS, 2 MG/DAY DURING 1 DAY, 1 MG/DAY DURING 4 DAYS, NUMBER OF SEPARATE DOSAGES: 3
     Route: 048
     Dates: start: 20100423, end: 20100504
  11. COLCHICINE [Suspect]
     Active Substance: COLCHICINE
     Indication: Hyperuricaemia
     Dosage: 3 MG/DAY DURING 6 DAYS, 2 MG/DAY DURING 1 DAY, 1 MG/DAY DURING 4 DAYS, NUMBER OF SEPARATE DOSAGES: 3
     Route: 048
     Dates: start: 201002

REACTIONS (5)
  - Neutropenia [Fatal]
  - Shock [Fatal]
  - Aspiration [Fatal]
  - Cardio-respiratory arrest [Fatal]
  - Thrombocytopenia [Fatal]

NARRATIVE: CASE EVENT DATE: 20100503
